FAERS Safety Report 5136115-2 (Version None)
Quarter: 2006Q4

REPORT INFORMATION
  Report Type: 
  Country: None (occurrence: None)
  Receive Date: 20061027
  Receipt Date: 20061018
  Transmission Date: 20070319
  Serious: Yes (Hospitalization)
  Sender: FDA-Public Use
  Company Number: HQWYE328619OCT06

PATIENT
  Sex: Female
  Weight: 77 kg

DRUGS (1)
  1. ENBREL [Suspect]
     Indication: RHEUMATOID ARTHRITIS
     Route: 058
     Dates: start: 20050509

REACTIONS (5)
  - ACNE [None]
  - PALLOR [None]
  - PRURITUS [None]
  - RASH [None]
  - YELLOW SKIN [None]
